FAERS Safety Report 10587370 (Version 3)
Quarter: 2015Q1

REPORT INFORMATION
  Report Type: Spontaneous
  Country: JP (occurrence: JP)
  Receive Date: 20141117
  Receipt Date: 20150123
  Transmission Date: 20150720
  Serious: Yes (Other)
  Sender: FDA-Public Use
  Company Number: JP-SHIONOGI, INC-2014001136

PATIENT
  Age: 78 Year
  Sex: Male
  Weight: 50 kg

DRUGS (6)
  1. FINIBAX [Suspect]
     Active Substance: DORIPENEM MONOHYDRATE
     Dosage: 0.25 G, TID
     Route: 041
     Dates: start: 20141107, end: 20141108
  2. FINIBAX [Suspect]
     Active Substance: DORIPENEM MONOHYDRATE
     Dosage: 0.25 G, TID
     Route: 041
     Dates: start: 20141101, end: 20141103
  3. CRAVIT [Suspect]
     Active Substance: LEVOFLOXACIN
     Indication: PNEUMONIA
     Dosage: 500 MG, QD
     Route: 041
     Dates: start: 20141028, end: 20141106
  4. FINIBAX [Suspect]
     Active Substance: DORIPENEM MONOHYDRATE
     Dosage: 0.5 G, TID
     Route: 041
     Dates: start: 20141104, end: 20141106
  5. ZITHROMAC [Concomitant]
     Active Substance: AZITHROMYCIN DIHYDRATE
     Indication: PNEUMONIA
     Dosage: 500 MG, QD
     Route: 041
     Dates: start: 20141106, end: 20141110
  6. FINIBAX [Suspect]
     Active Substance: DORIPENEM MONOHYDRATE
     Indication: PNEUMONIA
     Dosage: 0.5 G, TID
     Route: 041
     Dates: start: 20141025, end: 20141031

REACTIONS (1)
  - Renal disorder [Recovered/Resolved]

NARRATIVE: CASE EVENT DATE: 20141106
